APPROVED DRUG PRODUCT: DARTISLA ODT
Active Ingredient: GLYCOPYRROLATE
Strength: 0.85MG
Dosage Form/Route: TABLET, ORALLY DISINTEGRATING;ORAL
Application: N215019 | Product #002
Applicant: EDENBRIDGE PHARMACEUTICALS LLC
Approved: Oct 11, 2023 | RLD: No | RS: No | Type: DISCN